FAERS Safety Report 5878356-2 (Version None)
Quarter: 2008Q3

REPORT INFORMATION
  Report Type: 
  Country: None (occurrence: None)
  Receive Date: 20080911
  Receipt Date: 20080902
  Transmission Date: 20090109
  Serious: Yes (Life-Threatening, Hospitalization)
  Sender: FDA-Public Use
  Company Number: JP-PFIZER INC-2008072221

PATIENT
  Sex: Female
  Weight: 34.5 kg

DRUGS (7)
  1. ALDACTONE [Suspect]
     Route: 048
     Dates: start: 20071026, end: 20080807
  2. BLOPRESS [Interacting]
     Route: 048
     Dates: start: 20071026, end: 20080807
  3. VASOLAN [Concomitant]
     Route: 048
     Dates: start: 20071101, end: 20080807
  4. ARTIST [Concomitant]
     Route: 048
     Dates: start: 20071101, end: 20080807
  5. ASPIRIN [Concomitant]
     Route: 048
     Dates: start: 20080117, end: 20080807
  6. FLUITRAN [Concomitant]
     Route: 048
     Dates: start: 20080501, end: 20080807
  7. INDERAL [Concomitant]
     Route: 048
     Dates: start: 20080724, end: 20080807

REACTIONS (2)
  - DRUG INTERACTION [None]
  - HYPERKALAEMIA [None]
